FAERS Safety Report 14727464 (Version 1)
Quarter: 2018Q2

REPORT INFORMATION
  Report Type: Spontaneous
  Country: DE (occurrence: DE)
  Receive Date: 20180406
  Receipt Date: 20180406
  Transmission Date: 20180711
  Serious: Yes (Life-Threatening, Hospitalization)
  Sender: FDA-Public Use
  Company Number: DE-CIPLA LTD.-2018DE14479

PATIENT

DRUGS (8)
  1. CARBOPLATIN. [Suspect]
     Active Substance: CARBOPLATIN
     Indication: BRONCHIAL CARCINOMA
     Dosage: 475 MG, EVERY 22 DAYS
     Route: 042
     Dates: start: 20150625
  2. APREPITANT. [Concomitant]
     Active Substance: APREPITANT
     Indication: BRONCHIAL CARCINOMA
     Dosage: 80 MG, UNK
     Route: 048
     Dates: start: 20150625
  3. CISPLATIN. [Suspect]
     Active Substance: CISPLATIN
     Indication: BRONCHIAL CARCINOMA
     Dosage: 155 MG, EVERY 22 DAYS
     Route: 042
     Dates: start: 20150625
  4. GRANISETRON [Concomitant]
     Active Substance: GRANISETRON
     Indication: BRONCHIAL CARCINOMA
     Dosage: 1 MG, UNK
     Route: 048
     Dates: start: 20150625
  5. AVASTIN [Suspect]
     Active Substance: BEVACIZUMAB
     Indication: BRONCHIAL CARCINOMA
     Dosage: 7.5 MG/KG, EVERY 22 DAYS
     Route: 042
     Dates: start: 20150806, end: 20151008
  6. DIAZEPAM. [Concomitant]
     Active Substance: DIAZEPAM
     Indication: BRONCHIAL CARCINOMA
     Dosage: 5 MG, DAILY
     Route: 048
     Dates: start: 20150625
  7. DEXAMETHASONE. [Concomitant]
     Active Substance: DEXAMETHASONE
     Indication: BRONCHIAL CARCINOMA
     Dosage: 8 MG, UNK
     Route: 048
     Dates: start: 20150625
  8. ALIMTA [Suspect]
     Active Substance: PEMETREXED DISODIUM
     Indication: BRONCHIAL CARCINOMA
     Dosage: 1035 MG, EVERY 22 DAYS
     Route: 042
     Dates: start: 20150625

REACTIONS (3)
  - Pneumonia [Recovered/Resolved]
  - Transient ischaemic attack [Recovered/Resolved]
  - Ileus [Recovered/Resolved]

NARRATIVE: CASE EVENT DATE: 20150708
